FAERS Safety Report 8207095-8 (Version None)
Quarter: 2012Q1

REPORT INFORMATION
  Report Type: 
  Country: None (occurrence: None)
  Receive Date: 20120314
  Receipt Date: 20120306
  Transmission Date: 20120608
  Serious: Yes (Hospitalization)
  Sender: FDA-Public Use
  Company Number: US-NOVOPROD-342597

PATIENT
  Age: 69 Year
  Sex: Female
  Weight: 121 kg

DRUGS (14)
  1. VICTOZA [Suspect]
     Indication: TYPE 2 DIABETES MELLITUS
     Dosage: 1.2 MG, QD
     Route: 058
     Dates: start: 20111223, end: 20120101
  2. COREG [Concomitant]
     Indication: HYPERTENSION
     Dosage: 25MG, BID (1 TABLET TWO TIMES DAILY)
     Route: 048
     Dates: start: 20111123
  3. KLOR-CON [Concomitant]
     Indication: PRODUCT USED FOR UNKNOWN INDICATION
     Dosage: 10 MEQ, BID (1 TABLET ER TWO TIMES DAILY)
     Route: 048
     Dates: start: 20110504
  4. RAMIPRIL [Concomitant]
     Indication: PRODUCT USED FOR UNKNOWN INDICATION
     Dosage: 10 MG, QD  (1 CAPSULE DAILY)
     Route: 048
     Dates: start: 20120202
  5. CARVEDILOL [Concomitant]
     Indication: PRODUCT USED FOR UNKNOWN INDICATION
     Dosage: 25 MG, QD (1 TABLET DAILY)
     Route: 048
  6. CYANOCOBALAMIN [Concomitant]
     Indication: PRODUCT USED FOR UNKNOWN INDICATION
     Dosage: 1000MCG/ML MONTHLY; 1 MILLILITER MONTHLY
     Dates: start: 20110504
  7. ZETIA [Concomitant]
     Indication: PRODUCT USED FOR UNKNOWN INDICATION
     Dosage: 10 MG, QD (1 TABLET DAILY)
     Route: 048
     Dates: start: 20100326
  8. IBUPROFEN [Concomitant]
     Indication: PRODUCT USED FOR UNKNOWN INDICATION
     Dosage: 800 MG, TID (1 TABLET THREE TIMES A DAY)
     Dates: start: 20100330
  9. AMLODIPINE [Concomitant]
     Indication: PRODUCT USED FOR UNKNOWN INDICATION
     Dosage: 5 MG, QD (1 TABLET DAILY)
     Route: 048
     Dates: start: 20111123
  10. ACTOS [Concomitant]
     Indication: PRODUCT USED FOR UNKNOWN INDICATION
     Dosage: 45 MG, QD (1 TABLET DAILY)
     Route: 048
     Dates: start: 20110504
  11. OMEPRAZOLE [Concomitant]
     Indication: PRODUCT USED FOR UNKNOWN INDICATION
     Dosage: 40 MG, QD (1 CAP DAILY)
     Route: 048
     Dates: start: 20110711
  12. LASIX [Concomitant]
     Indication: PRODUCT USED FOR UNKNOWN INDICATION
     Dosage: 20 MG, QD (1 TABLET DAILY)
     Route: 048
     Dates: start: 20110504
  13. AMARYL [Concomitant]
     Indication: PRODUCT USED FOR UNKNOWN INDICATION
     Dosage: 4 MG, QD (1 TABLET DAILY)
     Dates: start: 20110504
  14. LANTUS [Concomitant]
     Indication: TYPE 2 DIABETES MELLITUS
     Dosage: SOLOSTAR; 60 U, QD, IN MORNING
     Route: 058
     Dates: start: 20120202

REACTIONS (2)
  - PANCREATITIS ACUTE [None]
  - CHOLELITHIASIS [None]
